FAERS Safety Report 19219136 (Version 1)
Quarter: 2021Q2

REPORT INFORMATION
  Report Type: Spontaneous
  Country: US (occurrence: US)
  Receive Date: 20210506
  Receipt Date: 20210506
  Transmission Date: 20210717
  Serious: No
  Sender: FDA-Public Use
  Company Number: US-ROCHE-2608157

PATIENT
  Sex: Male

DRUGS (14)
  1. ESBRIET [Suspect]
     Active Substance: PIRFENIDONE
     Indication: IDIOPATHIC PULMONARY FIBROSIS
     Route: 048
  2. AZITHROMYCIN ANHYDROUS. [Concomitant]
     Active Substance: AZITHROMYCIN ANHYDROUS
  3. OMEPRAZOLE. [Concomitant]
     Active Substance: OMEPRAZOLE
  4. ASPIRIN. [Concomitant]
     Active Substance: ASPIRIN
  5. ISOSORBIDE. [Concomitant]
     Active Substance: ISOSORBIDE
  6. LEVO T [Concomitant]
  7. NOVOLIN N [Concomitant]
     Active Substance: INSULIN HUMAN
  8. NOVOLIN R [Concomitant]
     Active Substance: INSULIN HUMAN
  9. PREDNISOLONE. [Concomitant]
     Active Substance: PREDNISOLONE
     Dosage: 20 MG/5 ML
  10. ATORVASTATIN [Concomitant]
     Active Substance: ATORVASTATIN
  11. ALLOPURINOL. [Concomitant]
     Active Substance: ALLOPURINOL
  12. TORSEMIDE. [Concomitant]
     Active Substance: TORSEMIDE
  13. WARFARIN [Concomitant]
     Active Substance: WARFARIN
  14. ENALAPRIL [Concomitant]
     Active Substance: ENALAPRIL

REACTIONS (3)
  - Medication error [Unknown]
  - Incorrect dose administered [Unknown]
  - No adverse event [Unknown]
